FAERS Safety Report 7451837-6 (Version None)
Quarter: 2011Q2

REPORT INFORMATION
  Report Type: 
  Country: None (occurrence: None)
  Receive Date: 20110502
  Receipt Date: 20100419
  Transmission Date: 20111010
  Serious: No
  Sender: FDA-Public Use
  Company Number: US-ASTRAZENECA-2010SE17336

PATIENT
  Age: 62 Year
  Sex: Female
  Weight: 65.8 kg

DRUGS (6)
  1. PIROXICAM [Concomitant]
  2. NEXIUM [Suspect]
     Route: 048
     Dates: start: 20100419
  3. KLONOPIN [Concomitant]
  4. ATENOLOL [Concomitant]
  5. NEXIUM [Suspect]
     Indication: GASTROOESOPHAGEAL REFLUX DISEASE
     Route: 048
     Dates: start: 20050101
  6. VIVELLE [Concomitant]

REACTIONS (5)
  - DYSGEUSIA [None]
  - VISUAL ACUITY REDUCED TRANSIENTLY [None]
  - HEADACHE [None]
  - PHOTOPSIA [None]
  - INCORRECT DOSE ADMINISTERED [None]
